FAERS Safety Report 8339630-3 (Version None)
Quarter: 2012Q2

REPORT INFORMATION
  Report Type: 
  Country: None (occurrence: None)
  Receive Date: 20120507
  Receipt Date: 20120503
  Transmission Date: 20120825
  Serious: Yes (Hospitalization)
  Sender: FDA-Public Use
  Company Number: PHEH2012US009445

PATIENT
  Age: 41 Year
  Sex: Female

DRUGS (1)
  1. GLEEVEC [Suspect]
     Dosage: UNK UKN, UNK

REACTIONS (7)
  - TRAUMATIC LIVER INJURY [None]
  - FACIAL PAIN [None]
  - PUBIS FRACTURE [None]
  - DYSPHAGIA [None]
  - JAW FRACTURE [None]
  - PELVIC PAIN [None]
  - ROAD TRAFFIC ACCIDENT [None]
